FAERS Safety Report 10204699 (Version 6)
Quarter: 2015Q2

REPORT INFORMATION
  Report Type: Spontaneous
  Country: US (occurrence: US)
  Receive Date: 20140529
  Receipt Date: 20150511
  Transmission Date: 20150821
  Serious: Yes (Other)
  Sender: FDA-Public Use
  Company Number: US-GLAXOSMITHKLINE-A1074760A

PATIENT
  Age: 76 Year
  Sex: Male
  Weight: 142 kg

DRUGS (4)
  1. DEXA [Suspect]
     Active Substance: DEXAMETHASONE
     Indication: PRODUCT USED FOR UNKNOWN INDICATION
  2. MEKINIST [Interacting]
     Active Substance: TRAMETINIB DIMETHYL SULFOXIDE
     Indication: PLASMA CELL MYELOMA
     Dosage: 2 MG, QD
     Route: 065
     Dates: start: 201403, end: 20140414
  3. MEKINIST [Interacting]
     Active Substance: TRAMETINIB DIMETHYL SULFOXIDE
     Dosage: 2 MG, QD
     Route: 065
  4. VORICONAZOLE. [Interacting]
     Active Substance: VORICONAZOLE
     Indication: CANDIDA INFECTION
     Dosage: UNK, U
     Route: 048
     Dates: start: 201404, end: 201405

REACTIONS (17)
  - Cytopenia [Recovering/Resolving]
  - Adverse event [Unknown]
  - Drug interaction [Unknown]
  - Off label use [Unknown]
  - Malassezia infection [Recovered/Resolved]
  - Dizziness [Unknown]
  - Platelet count decreased [Not Recovered/Not Resolved]
  - Constipation [Recovering/Resolving]
  - Diarrhoea [Recovering/Resolving]
  - Transient acantholytic dermatosis [Recovered/Resolved]
  - Acne [Recovered/Resolved]
  - Arthropathy [Unknown]
  - Thrombocytopenia [Unknown]
  - Hypersensitivity [Recovered/Resolved]
  - Neutropenia [Unknown]
  - Haemoglobin decreased [Recovering/Resolving]
  - Anaemia [Unknown]

NARRATIVE: CASE EVENT DATE: 20140414
